FAERS Safety Report 4887443-7 (Version None)
Quarter: 2006Q1

REPORT INFORMATION
  Report Type: 
  Country: None (occurrence: None)
  Receive Date: 20060118
  Receipt Date: 20060103
  Transmission Date: 20060701
  Serious: Yes (Other)
  Sender: FDA-Public Use
  Company Number: 6019638

PATIENT
  Sex: Male

DRUGS (2)
  1. LAMOGINE (50 MG) [Suspect]
     Indication: CONVULSION
     Dates: start: 20051122, end: 20051124
  2. VALPRO (VALPROIC ACID) [Concomitant]

REACTIONS (2)
  - CONVULSION [None]
  - DRUG INEFFECTIVE [None]
